FAERS Safety Report 5796151-X (Version None)
Quarter: 2008Q3

REPORT INFORMATION
  Report Type: 
  Country: None (occurrence: None)
  Receive Date: 20080701
  Receipt Date: 20080627
  Transmission Date: 20090109
  Serious: Yes (Death, Hospitalization)
  Sender: FDA-Public Use
  Company Number: BG-BRISTOL-MYERS SQUIBB COMPANY-14105571

PATIENT
  Age: 26 Year
  Sex: Female

DRUGS (1)
  1. ABILIFY [Suspect]
     Indication: SCHIZOPHRENIA
     Dosage: SET06 15MG/D. INCREASED 30MG/D JUN-JUL07. REDUCED 15MG/D AUG-DEC07.
     Route: 048
     Dates: start: 20080101, end: 20080227

REACTIONS (7)
  - ALANINE AMINOTRANSFERASE INCREASED [None]
  - ASPARTATE AMINOTRANSFERASE INCREASED [None]
  - HYPERGLYCAEMIA [None]
  - LEUKOCYTOSIS [None]
  - PULMONARY EMBOLISM [None]
  - RESPIRATORY DEPRESSION [None]
  - SYNCOPE [None]
